FAERS Safety Report 23419367 (Version 2)
Quarter: 2024Q1

REPORT INFORMATION
  Report Type: Report from Study
  Country: US (occurrence: US)
  Receive Date: 20240118
  Receipt Date: 20240222
  Transmission Date: 20240409
  Serious: Yes (Death, Hospitalization, Other)
  Sender: FDA-Public Use
  Company Number: US-TAKEDA-2024TUS003922

PATIENT
  Age: 53 Year
  Sex: Male
  Weight: 95 kg

DRUGS (2)
  1. FRUQUINTINIB [Suspect]
     Active Substance: FRUQUINTINIB
     Indication: Rectal cancer
     Dosage: 5 MILLIGRAM
     Route: 048
     Dates: start: 202312
  2. FRUQUINTINIB [Suspect]
     Active Substance: FRUQUINTINIB
     Dosage: 5 MILLIGRAM
     Route: 048

REACTIONS (2)
  - Death [Fatal]
  - COVID-19 [Unknown]

NARRATIVE: CASE EVENT DATE: 20240203
